FAERS Safety Report 9361018 (Version 1)
Quarter: 2013Q2

REPORT INFORMATION
  Report Type: Spontaneous
  Country: US (occurrence: None)
  Receive Date: 20130618
  Receipt Date: 20130618
  Transmission Date: 20140414
  Serious: Yes (Other)
  Sender: FDA-Public Use
  Company Number: E2B_00000931

PATIENT
  Age: 55 Year
  Sex: Female
  Weight: 49.9 kg

DRUGS (8)
  1. TRAMADOL HYDROCHLORIDE [Suspect]
     Indication: PAIN
     Dosage: 300 MG 1 IN 1 D
     Route: 048
     Dates: start: 2011
  2. LEVETIRACETAM (TABLETS) (LEVETIRACETAM) [Concomitant]
  3. CLONAZEPAM (TABLETS) [Concomitant]
  4. AMLODIPINE (TABLETS) [Concomitant]
  5. TRAMADOL HYDROCHLORIDE (RYBIX) (TABLETS) [Concomitant]
  6. SINGULAIR [Concomitant]
  7. LEVALBUTEROL (XOPENEX) (INHALER) [Concomitant]
  8. KETOROLAC TROMETHAMINE (SPRIX) (NASAL SPRAY) [Concomitant]

REACTIONS (3)
  - Grand mal convulsion [None]
  - Drug ineffective [None]
  - Medication residue present [None]
